FAERS Safety Report 6463143-7 (Version None)
Quarter: 2009Q4

REPORT INFORMATION
  Report Type: 
  Country: None (occurrence: None)
  Receive Date: 20091123
  Receipt Date: 20091118
  Transmission Date: 20100525
  Serious: Yes (Hospitalization)
  Sender: FDA-Public Use
  Company Number: 1000009344

PATIENT
  Age: 64 Year
  Sex: Female
  Weight: 90.7194 kg

DRUGS (17)
  1. SAVELLA [Suspect]
     Indication: FIBROMYALGIA
     Dosage: SEE IMAGE
     Route: 048
     Dates: start: 20090612, end: 20090612
  2. SAVELLA [Suspect]
     Indication: FIBROMYALGIA
     Dosage: SEE IMAGE
     Route: 048
     Dates: start: 20090613, end: 20090614
  3. SAVELLA [Suspect]
     Indication: FIBROMYALGIA
     Dosage: SEE IMAGE
     Route: 048
     Dates: start: 20090615, end: 20090618
  4. SAVELLA [Suspect]
     Indication: FIBROMYALGIA
     Dosage: SEE IMAGE
     Route: 048
     Dates: start: 20090619, end: 20090625
  5. SAVELLA [Suspect]
     Indication: FIBROMYALGIA
     Dosage: SEE IMAGE
     Route: 048
     Dates: start: 20090626, end: 20090702
  6. SAVELLA [Suspect]
     Indication: FIBROMYALGIA
     Dosage: 200 MG (100 MG, 2 IN 1 D), ORAL
     Route: 048
     Dates: start: 20090703, end: 20090812
  7. ZOLOFT [Suspect]
     Indication: DEPRESSION
     Dosage: 100 MG (100 MG, 1 IN 1 D), ORAL, 50 MG (50 MG, 1 IN 1 D), ORAL  BEFORE 2006
     Route: 048
     Dates: end: 20090625
  8. ZOLOFT [Suspect]
     Indication: DEPRESSION
     Dosage: 100 MG (100 MG, 1 IN 1 D), ORAL, 50 MG (50 MG, 1 IN 1 D), ORAL  BEFORE 2006
     Route: 048
     Dates: start: 20090626, end: 20090812
  9. MOBIC (7.5 MILLIGRAM) [Concomitant]
  10. LIDODERM PATCH (TRANSDERMAL) [Concomitant]
  11. AMBIEN [Concomitant]
  12. EVISTA (60 MILLIGRAM) [Concomitant]
  13. PROTONIX (40 MILLIGRAM) [Concomitant]
  14. PRAVACHOL (40 MILLIGRAM) [Concomitant]
  15. VITAMIN D [Concomitant]
  16. FISH OIL [Concomitant]
  17. CALCIUM [Concomitant]

REACTIONS (6)
  - BLOOD ALKALINE PHOSPHATASE INCREASED [None]
  - CONFUSIONAL STATE [None]
  - CONVULSION [None]
  - DRUG INTERACTION [None]
  - INCOHERENT [None]
  - MENTAL STATUS CHANGES [None]
